FAERS Safety Report 8012789-3 (Version None)
Quarter: 2011Q4

REPORT INFORMATION
  Report Type: 
  Country: None (occurrence: None)
  Receive Date: 20111223
  Receipt Date: 20111223
  Transmission Date: 20120403
  Serious: No
  Sender: FDA-Public Use
  Company Number: None

PATIENT
  Age: 52 Year
  Sex: Female
  Weight: 71.6683 kg

DRUGS (2)
  1. VENLAFAXINE HCL EXTENDED-RELEASE [Suspect]
     Indication: DEPRESSION
     Dosage: 150MG ONE DAILY
     Dates: start: 20110322
  2. VENLAFAXINE HCL EXTENDED-RELEASE [Suspect]
     Indication: ADJUSTMENT DISORDER WITH ANXIETY
     Dosage: 150MG ONE DAILY
     Dates: start: 20110322

REACTIONS (4)
  - RESTLESSNESS [None]
  - ABDOMINAL DISCOMFORT [None]
  - NAIL PICKING [None]
  - IRRITABILITY [None]
